FAERS Safety Report 4921125-8 (Version None)
Quarter: 2006Q1

REPORT INFORMATION
  Report Type: 
  Country: None (occurrence: None)
  Receive Date: 20060217
  Receipt Date: 20060202
  Transmission Date: 20060701
  Serious: Yes (Other)
  Sender: FDA-Public Use
  Company Number: 2006RR-01591

PATIENT
  Age: 65 Year
  Sex: Male

DRUGS (6)
  1. ACETAMINOPHEN [Suspect]
  2. REMICADE [Suspect]
     Indication: RHEUMATOID ARTHRITIS
     Dosage: 3 MG/KG, INTRAVENOUS
     Route: 042
     Dates: start: 20021001
  3. FERROUS FUMARATE      (IRON) [Suspect]
     Dosage: ORAL
     Route: 048
  4. AZATHIOPRINE [Concomitant]
  5. ATENOLOL [Concomitant]
  6. OMEPRAZOLE [Concomitant]

REACTIONS (2)
  - OVERDOSE [None]
  - SUICIDE ATTEMPT [None]
